FAERS Safety Report 10018176 (Version 2)
Quarter: 2014Q1

REPORT INFORMATION
  Report Type: Spontaneous
  Country: US (occurrence: US)
  Receive Date: 20140318
  Receipt Date: 20140318
  Transmission Date: 20141002
  Serious: Yes (Hospitalization)
  Sender: FDA-Public Use
  Company Number: US-BRISTOL-MYERS SQUIBB COMPANY-19143957

PATIENT
  Age: 73 Year
  Sex: Male
  Weight: 64.03 kg

DRUGS (19)
  1. ERBITUX [Suspect]
     Indication: METASTATIC SQUAMOUS CELL CARCINOMA
     Dosage: 188MG ON WK1 DAY1, THEN 470MG
     Route: 042
     Dates: start: 20130725
  2. ACYCLOVIR CAPS 200 MG [Concomitant]
  3. ADVAIR [Concomitant]
  4. ASPIRIN [Concomitant]
  5. AZITHROMYCIN [Concomitant]
  6. BACTRIM [Concomitant]
  7. CELEXA [Concomitant]
  8. ITRACONAZOLE [Concomitant]
  9. MAG-OX [Concomitant]
  10. METOPROLOL TARTRATE [Concomitant]
  11. MINOCYCLINE [Concomitant]
  12. NAC [Concomitant]
  13. OCUVITE [Concomitant]
  14. OS-CAL 500 [Concomitant]
  15. PREDNISONE [Concomitant]
  16. PROTONIX [Concomitant]
  17. RAPAMUNE [Concomitant]
  18. SIMVASTATIN [Concomitant]
  19. ZOFRAN [Concomitant]
     Dosage: CDT 8 MG TAB, RAPID DISSOLVE

REACTIONS (1)
  - Infusion related reaction [Unknown]
